FAERS Safety Report 17413781 (Version 1)
Quarter: 2020Q1

REPORT INFORMATION
  Report Type: Spontaneous
  Country: ZA (occurrence: ZA)
  Receive Date: 20200213
  Receipt Date: 20200213
  Transmission Date: 20200409
  Serious: Yes (Hospitalization)
  Sender: FDA-Public Use
  Company Number: ZA-SA-2020SA033071

PATIENT
  Sex: Female

DRUGS (2)
  1. AUBAGIO [Suspect]
     Active Substance: TERIFLUNOMIDE
  2. INTERFERON [Concomitant]
     Active Substance: INTERFERON

REACTIONS (3)
  - Blood pressure increased [Unknown]
  - Ear discomfort [Unknown]
  - Condition aggravated [Unknown]
